FAERS Safety Report 10014271 (Version 1)
Quarter: 2014Q1

REPORT INFORMATION
  Report Type: Spontaneous
  Country: US (occurrence: US)
  Receive Date: 20140317
  Receipt Date: 20140317
  Transmission Date: 20141002
  Serious: No
  Sender: FDA-Public Use
  Company Number: US-BIOGENIDEC-2014BI015200

PATIENT
  Sex: Male

DRUGS (5)
  1. TECFIDERA [Suspect]
     Indication: MULTIPLE SCLEROSIS
     Route: 048
     Dates: start: 20140131, end: 20140207
  2. TECFIDERA [Suspect]
     Indication: MULTIPLE SCLEROSIS
     Route: 048
     Dates: start: 20140208
  3. CLONAZEPAM [Concomitant]
  4. LISINOPRIL [Concomitant]
  5. ASPIRIN [Concomitant]

REACTIONS (7)
  - Fatigue [Unknown]
  - Hot flush [Unknown]
  - Nausea [Unknown]
  - Abdominal pain upper [Unknown]
  - Diarrhoea [Unknown]
  - Pruritus [Unknown]
  - Erythema [Unknown]
